FAERS Safety Report 4473439-6 (Version None)
Quarter: 2004Q4

REPORT INFORMATION
  Report Type: 
  Country: None (occurrence: None)
  Receive Date: 20040920
  Receipt Date: 20040707
  Transmission Date: 20050328
  Serious: Yes (Hospitalization)
  Sender: FDA-Public Use
  Company Number: S04-USA-04011-01

PATIENT
  Age: 40 Year
  Sex: Male

DRUGS (5)
  1. CELEXA [Suspect]
     Indication: DEPRESSION
     Dates: start: 20030901, end: 20040201
  2. CELEXA [Suspect]
     Indication: INSOMNIA
     Dates: start: 20030901, end: 20040201
  3. ALCOHOL (ALCOHOL) [Suspect]
     Dates: start: 20040201, end: 20040201
  4. ATIVAN [Concomitant]
  5. VALIUM [Concomitant]

REACTIONS (4)
  - AMNESIA [None]
  - HALLUCINATION, AUDITORY [None]
  - MEMORY IMPAIRMENT [None]
  - SUICIDAL IDEATION [None]
